FAERS Safety Report 13097488 (Version 1)
Quarter: 2017Q1

REPORT INFORMATION
  Report Type: Spontaneous
  Country: US (occurrence: US)
  Receive Date: 20170108
  Receipt Date: 20170108
  Transmission Date: 20170428
  Serious: Yes (Other)
  Sender: FDA-Public Use
  Company Number: None

PATIENT
  Age: 36 Year
  Sex: Female
  Weight: 49.5 kg

DRUGS (1)
  1. NUVARING [Suspect]
     Active Substance: ETHINYL ESTRADIOL\ETONOGESTREL
     Indication: CONTRACEPTION
     Route: 067
     Dates: start: 20160912, end: 20170107

REACTIONS (7)
  - Bacterial vaginosis [None]
  - Stress [None]
  - Pain [None]
  - Urinary tract infection [None]
  - Discomfort [None]
  - Fungal infection [None]
  - Cystitis [None]

NARRATIVE: CASE EVENT DATE: 20170101
